FAERS Safety Report 19743409 (Version 1)
Quarter: 2021Q3

REPORT INFORMATION
  Report Type: Spontaneous
  Country: US (occurrence: US)
  Receive Date: 20210824
  Receipt Date: 20210824
  Transmission Date: 20211014
  Serious: No
  Sender: FDA-Public Use
  Company Number: US-SA-2021SA278614

PATIENT
  Age: 78 Year
  Sex: Female

DRUGS (2)
  1. FLOMAX [Suspect]
     Active Substance: TAMSULOSIN HYDROCHLORIDE
     Indication: LOWER URINARY TRACT SYMPTOMS
     Dosage: 0.4 MG, BID
     Route: 065
  2. FLOMAX [Suspect]
     Active Substance: TAMSULOSIN HYDROCHLORIDE
     Dosage: 0.8 MG, BID
     Route: 065

REACTIONS (7)
  - Prostatic disorder [Unknown]
  - Condition aggravated [Unknown]
  - Pollakiuria [Unknown]
  - Insomnia [Unknown]
  - Dizziness [Unknown]
  - Fear of falling [Unknown]
  - Benign prostatic hyperplasia [Unknown]
